FAERS Safety Report 4397647-8 (Version None)
Quarter: 2004Q3

REPORT INFORMATION
  Report Type: 
  Country: None (occurrence: None)
  Receive Date: 20040713
  Receipt Date: 20040629
  Transmission Date: 20050211
  Serious: Yes (Hospitalization)
  Sender: FDA-Public Use
  Company Number: F01200401657

PATIENT
  Age: 71 Year
  Sex: Female

DRUGS (6)
  1. OXALIPLATIN - SOLUTION - 85 MG/M2 [Suspect]
     Indication: COLORECTAL CANCER
     Dosage: 85 MG/M2 OTHER
     Route: 042
     Dates: start: 20000809, end: 20000809
  2. FLUOROURACIL [Suspect]
     Dosage: 2600 MG/M2 24 H INFUSION, INTRAVENOUS NOS
     Route: 042
     Dates: start: 20000809, end: 20000809
  3. LEUCOVORIN CALCIUM [Suspect]
     Dosage: 200 MG IV 1 H INFUSION, INTRAVENOUS NOS
     Route: 042
     Dates: start: 20000809, end: 20000809
  4. DEXAMETHASONE [Concomitant]
  5. PRIMPERAN TAB [Concomitant]
  6. ZOFRAN [Concomitant]

REACTIONS (2)
  - ANGINA PECTORIS [None]
  - ARTERIOSPASM CORONARY [None]
